FAERS Safety Report 7434879-6 (Version None)
Quarter: 2011Q2

REPORT INFORMATION
  Report Type: 
  Country: None (occurrence: None)
  Receive Date: 20110425
  Receipt Date: 20110414
  Transmission Date: 20111010
  Serious: Yes (Other)
  Sender: FDA-Public Use
  Company Number: CA-ROCHE-750430

PATIENT
  Sex: Female
  Weight: 66.7 kg

DRUGS (1)
  1. BEVACIZUMAB [Suspect]
     Indication: CONGENITAL MUSCULOSKELETAL ANOMALY
     Dosage: FORM: INFUSION
     Route: 042
     Dates: start: 20100914, end: 20110224

REACTIONS (6)
  - ROAD TRAFFIC ACCIDENT [None]
  - FUNGAL INFECTION [None]
  - HEADACHE [None]
  - WHIPLASH INJURY [None]
  - DYSGEUSIA [None]
  - OROPHARYNGEAL PAIN [None]
